FAERS Safety Report 24570016 (Version 3)
Quarter: 2025Q1

REPORT INFORMATION
  Report Type: Spontaneous
  Country: US (occurrence: US)
  Receive Date: 20241031
  Receipt Date: 20250318
  Transmission Date: 20250408
  Serious: Yes (Other)
  Sender: APELLIS PHARMACEUTICALS
  Company Number: US-APELLIS PHARMACEUTICALS-APL-2023-003081

PATIENT
  Weight: 77 kg

DRUGS (16)
  1. SYFOVRE [Suspect]
     Active Substance: PEGCETACOPLAN
     Indication: Dry age-related macular degeneration
     Route: 031
     Dates: start: 20230922, end: 20230922
  2. SYFOVRE [Suspect]
     Active Substance: PEGCETACOPLAN
     Indication: Stargardt^s disease
  3. IZERVAY [Suspect]
     Active Substance: AVACINCAPTAD PEGOL SODIUM
     Indication: Dry age-related macular degeneration
     Dates: start: 20230926
  4. ONDANSETRON [Concomitant]
     Active Substance: ONDANSETRON
     Indication: Product used for unknown indication
  5. OMEPRAZOLE [Concomitant]
     Active Substance: OMEPRAZOLE
     Indication: Product used for unknown indication
     Route: 048
  6. DIAMOX SEQUELS [Concomitant]
     Active Substance: ACETAZOLAMIDE
     Indication: Product used for unknown indication
     Dosage: TAKE 1 CAPSULE (500 MG TOTAL) BY MOUTH IN THE MORNING?AND 1 CAPSULE (500 MG TOTAL) BEFORE BEDTIME...
     Route: 048
  7. ACETAMINOPHEN AND CODEINE [Concomitant]
     Active Substance: ACETAMINOPHEN\CODEINE PHOSPHATE
     Indication: Pain
     Dosage: 300-30 MG / TAKE 1 TABLET BY MOUTH 3 (THREE) TIMES A DAY IF NEEDED FOR SEVERE PAIN FOR UP TO 5 DA...
     Route: 048
  8. MEDROL [Concomitant]
     Active Substance: METHYLPREDNISOLONE
     Indication: Product used for unknown indication
     Dosage: 1 TABLET DAILY
     Route: 048
  9. XANAX [Concomitant]
     Active Substance: ALPRAZOLAM
     Indication: Product used for unknown indication
     Route: 048
  10. ADDERALL [Concomitant]
     Active Substance: AMPHETAMINE ASPARTATE\AMPHETAMINE SULFATE\DEXTROAMPHETAMINE SACCHARATE\DEXTROAMPHETAMINE SULFATE
     Indication: Product used for unknown indication
     Dosage: TAKE 1 TABLET (10 MG TOTAL) BY MOUTH TWO(2) TIMES DAILY
     Route: 048
  11. PREDNISOLONE ACETATE [Concomitant]
     Active Substance: PREDNISOLONE ACETATE
     Indication: Product used for unknown indication
     Dosage: APPLY OR INSTILL 1 DROP INTO BOTH EYES TWO(2) TIMES DAILY
     Route: 047
  12. METHOTREXATE [Concomitant]
     Active Substance: METHOTREXATE
     Indication: Product used for unknown indication
     Dosage: TAKE 6 TABLETS (15 MG TOTAL) BY MOUTH ONCE EVERY WEEK (ON THE SAME DAY EACH WEEK)
     Route: 048
  13. HUMIRA [Concomitant]
     Active Substance: ADALIMUMAB
     Indication: Product used for unknown indication
     Dosage: INJECT 40 MG INTRAMUSCULARLY ONCE EVERY WEEK (ON THE SAME DAY EACH WEEK)
     Route: 030
  14. FOLVITE [Concomitant]
     Active Substance: FOLIC ACID
     Indication: Product used for unknown indication
     Dosage: TAKE 1 TABLET (1 MG TOTAL) BY MOUTH EVERY DAY
     Route: 048
  15. PROTONIX [Concomitant]
     Active Substance: PANTOPRAZOLE SODIUM
     Indication: Product used for unknown indication
  16. VITAMIN C [Concomitant]
     Active Substance: ASCORBIC ACID
     Indication: Product used for unknown indication

REACTIONS (20)
  - Retinal ischaemia [Unknown]
  - Glaucoma [Unknown]
  - Retinal occlusive vasculitis [Recovering/Resolving]
  - Retinal vasculitis [Recovering/Resolving]
  - Hypotony of eye [Unknown]
  - Vitritis [Unknown]
  - Vitritis [Unknown]
  - Eye pain [Unknown]
  - Ocular hypertension [Not Recovered/Not Resolved]
  - Corneal oedema [Unknown]
  - Diarrhoea [Recovered/Resolved]
  - Off label use [Unknown]
  - Blindness unilateral [Unknown]
  - Choroiditis [Unknown]
  - Chorioretinitis [Unknown]
  - Conjunctival oedema [Unknown]
  - Barrett^s oesophagus [Unknown]
  - Alanine aminotransferase increased [Unknown]
  - Hiatus hernia [Unknown]
  - Weight increased [Unknown]

NARRATIVE: CASE EVENT DATE: 20231001
